FAERS Safety Report 8993240 (Version 1)
Quarter: 2013Q1

REPORT INFORMATION
  Report Type: Spontaneous
  Country: US (occurrence: US)
  Receive Date: 20130102
  Receipt Date: 20130102
  Transmission Date: 20140127
  Serious: No
  Sender: FDA-Public Use
  Company Number: US-PFIZER INC-2012334391

PATIENT
  Age: 48 Year
  Sex: Male
  Weight: 100.68 kg

DRUGS (6)
  1. LYRICA [Suspect]
     Dosage: 75 MG, 2X/DAY
     Route: 048
  2. PREDNISONE [Concomitant]
     Dosage: 10 MG, 1X/DAY
     Route: 048
  3. PREDNISONE [Concomitant]
     Dosage: TAPER DOSE TODAY IS 2 DAY OF 5 TABLETS
     Route: 048
  4. IPRATROPIUM BROMIDE [Concomitant]
     Dosage: 500 UG, (0.02% SOLN FOR INHALATION, INHALE 2.5 MILLILITER EVERY 6-8 HOURS VIA NEBULIZER)
  5. ADVAIR DISKUS [Concomitant]
     Dosage: 1 DF, 2X/DAY
  6. ZESTORETIC [Concomitant]
     Dosage: 20-25 MG, TAKE 1 TABLET EVERY DAY
     Route: 048

REACTIONS (1)
  - Back pain [Unknown]
